FAERS Safety Report 25852441 (Version 1)
Quarter: 2025Q3

REPORT INFORMATION
  Report Type: Spontaneous
  Country: EU (occurrence: US)
  Receive Date: 20250926
  Receipt Date: 20250926
  Transmission Date: 20251021
  Serious: Yes (Other)
  Sender: BIOCODEX
  Company Number: EU-BIOCODEX2-2025001501

PATIENT
  Age: 2 Year
  Sex: Male

DRUGS (3)
  1. STIRIPENTOL [Suspect]
     Active Substance: STIRIPENTOL
     Indication: Severe myoclonic epilepsy of infancy
     Dosage: 34?MG/KG/DAY
     Route: 065
     Dates: start: 202105
  2. CLOBAZAM [Concomitant]
     Active Substance: CLOBAZAM
     Indication: Severe myoclonic epilepsy of infancy
     Route: 065
  3. FENFLURAMINE [Concomitant]
     Active Substance: FENFLURAMINE
     Indication: Severe myoclonic epilepsy of infancy
     Route: 065

REACTIONS (5)
  - Drug ineffective [Unknown]
  - Behaviour disorder [Unknown]
  - Status epilepticus [Unknown]
  - Mood swings [Unknown]
  - Sleep disorder [Unknown]
